FAERS Safety Report 7328952-0 (Version None)
Quarter: 2011Q1

REPORT INFORMATION
  Report Type: 
  Country: None (occurrence: None)
  Receive Date: 20110225
  Receipt Date: 20110225
  Transmission Date: 20110831
  Serious: Yes (Life-Threatening, Hospitalization)
  Sender: FDA-Public Use
  Company Number: None

PATIENT
  Age: 89 Year
  Sex: Female
  Weight: 75.7507 kg

DRUGS (1)
  1. DABIGATRAN 150 MG PRADAXA [Suspect]
     Indication: ATRIAL FIBRILLATION
     Dosage: 150 MG BID PO
     Route: 048
     Dates: start: 20110216, end: 20110217

REACTIONS (5)
  - GASTROINTESTINAL HAEMORRHAGE [None]
  - CREATININE RENAL CLEARANCE DECREASED [None]
  - HYPOVOLAEMIC SHOCK [None]
  - HAEMOGLOBIN DECREASED [None]
  - RENAL IMPAIRMENT [None]
